FAERS Safety Report 23081903 (Version 2)
Quarter: 2023Q4

REPORT INFORMATION
  Report Type: Spontaneous
  Country: US (occurrence: US)
  Receive Date: 20231019
  Receipt Date: 20231114
  Transmission Date: 20240110
  Serious: No
  Sender: FDA-Public Use
  Company Number: US-SA-SAC20231017000743

PATIENT
  Age: 14 Year
  Sex: Male
  Weight: 54.2 kg

DRUGS (2)
  1. DUPIXENT [Suspect]
     Active Substance: DUPILUMAB
     Indication: Dermatitis atopic
     Dosage: 200 MG, QOW
     Route: 058
     Dates: start: 20230619
  2. CEFDINIR [Concomitant]
     Active Substance: CEFDINIR
     Dosage: UNK

REACTIONS (14)
  - Ear infection [Unknown]
  - Pain [Unknown]
  - Tenderness [Unknown]
  - Nausea [Unknown]
  - Vomiting [Unknown]
  - Diarrhoea [Unknown]
  - Productive cough [Unknown]
  - Chest discomfort [Unknown]
  - Fatigue [Unknown]
  - Nasal congestion [Unknown]
  - Dysphagia [Unknown]
  - Infectious mononucleosis [Unknown]
  - Pharyngitis streptococcal [Unknown]
  - Viral infection [Unknown]

NARRATIVE: CASE EVENT DATE: 20230101
